FAERS Safety Report 15767175 (Version 1)
Quarter: 2018Q4

REPORT INFORMATION
  Report Type: Report from Study
  Country: None (occurrence: US)
  Receive Date: 20181227
  Receipt Date: 20181227
  Transmission Date: 20190205
  Serious: Yes (Other)
  Sender: FDA-Public Use
  Company Number: US-ABBVIE-18S-163-2601835-00

PATIENT
  Age: 59 Year
  Sex: Female

DRUGS (1)
  1. CREON [Suspect]
     Active Substance: PANCRELIPASE AMYLASE\PANCRELIPASE LIPASE\PANCRELIPASE PROTEASE
     Indication: PRODUCT USED FOR UNKNOWN INDICATION
     Route: 048

REACTIONS (14)
  - Anal incontinence [Unknown]
  - Haemorrhoids [Unknown]
  - Gastrooesophageal reflux disease [Unknown]
  - Constipation [Unknown]
  - Nausea [Unknown]
  - Pancreatitis chronic [Unknown]
  - Anal incontinence [Unknown]
  - Diaphragmatic hernia [Unknown]
  - Large intestine benign neoplasm [Unknown]
  - Vomiting [Unknown]
  - Abdominal pain [Unknown]
  - Diverticulum intestinal [Unknown]
  - Gastrointestinal melanosis [Unknown]
  - Abdominal distension [Unknown]

NARRATIVE: CASE EVENT DATE: 20160425
